FAERS Safety Report 6327421-4 (Version None)
Quarter: 2009Q3

REPORT INFORMATION
  Report Type: 
  Country: None (occurrence: None)
  Receive Date: 20090825
  Receipt Date: 20090813
  Transmission Date: 20100115
  Serious: Yes (Hospitalization)
  Sender: FDA-Public Use
  Company Number: JP-PFIZER INC-2008023729

PATIENT
  Age: 64 Year

DRUGS (17)
  1. *FOLINIC ACID [Suspect]
     Indication: COLORECTAL CANCER
     Dosage: TDD 200 MG/M2
     Dates: start: 20080227
  2. FLUOROURACIL [Suspect]
     Indication: COLORECTAL CANCER
     Dosage: TDD 400 MG/M2
     Route: 040
     Dates: start: 20080227
  3. FLUOROURACIL [Suspect]
     Dosage: TDD 2400 MG/M2, CONTINUOUS INFUSION
     Route: 042
     Dates: start: 20080227
  4. SUNITINIB MALATE [Suspect]
     Indication: COLORECTAL CANCER
     Dosage: 37.5 MG, 1X/DAY
     Route: 048
     Dates: start: 20080227
  5. OXALIPLATIN [Suspect]
     Indication: COLORECTAL CANCER
     Dosage: TDD 85 MG/M2
     Route: 042
     Dates: start: 20080227
  6. GRANISETRON HYDROCHLORIDE [Concomitant]
     Route: 042
     Dates: start: 20080227, end: 20080227
  7. PRAVASTATIN SODIUM [Concomitant]
     Route: 048
     Dates: start: 19920101, end: 20080312
  8. BENIDIPINE HYDROCHLORIDE [Concomitant]
     Route: 048
     Dates: start: 19920101, end: 20080312
  9. VALSARTAN [Concomitant]
     Route: 048
     Dates: start: 20010101, end: 20080312
  10. AZULENE SULFONATE SODIUM/L-GLUTAMINE [Concomitant]
     Route: 048
     Dates: start: 20010101, end: 20080312
  11. URSODIOL [Concomitant]
     Route: 048
     Dates: start: 20010101, end: 20080312
  12. GLIMEPIRIDE [Concomitant]
     Route: 048
     Dates: start: 20000101, end: 20080312
  13. INSULIN ASPART [Concomitant]
     Route: 058
     Dates: start: 19920101, end: 20080312
  14. CLONAZEPAM [Concomitant]
     Route: 048
  15. HALOPERIDOL [Concomitant]
     Route: 042
  16. DEXAMETHASONE SODIUM PHOSPHATE [Concomitant]
     Route: 042
     Dates: start: 20080227, end: 20080227
  17. METFORMIN HYDROCHLORIDE [Concomitant]
     Route: 048
     Dates: start: 20010101, end: 20080312

REACTIONS (3)
  - DECREASED APPETITE [None]
  - FATIGUE [None]
  - HICCUPS [None]
